FAERS Safety Report 4673154-X (Version None)
Quarter: 2005Q2

REPORT INFORMATION
  Report Type: 
  Country: None (occurrence: None)
  Receive Date: 20050523
  Receipt Date: 20050523
  Transmission Date: 20051028
  Serious: Yes (Hospitalization)
  Sender: FDA-Public Use
  Company Number: None

PATIENT
  Sex: Male
  Weight: 79.7 kg

DRUGS (6)
  1. IMATINIB MESYLATE 100MG CAPSULES, NOVARTIS [Suspect]
     Indication: GLIOBLASTOMA MULTIFORME
     Dosage: 400MG PO BID X 8 DAYS
     Route: 048
     Dates: start: 20050422, end: 20050429
  2. TEMOZOLOMIDE,SCHERING-PLOUGH [Suspect]
     Indication: GLIOBLASTOMA MULTIFORME
     Dosage: 200MG/M2=370 MG X 5 DAYS
     Dates: start: 20050425, end: 20050429
  3. DECADRON [Concomitant]
  4. NEXIUM [Concomitant]
  5. ZOLOFT [Concomitant]
  6. SEROQUEL [Concomitant]

REACTIONS (1)
  - HAEMOGLOBIN DECREASED [None]
